FAERS Safety Report 15587516 (Version 1)
Quarter: 2018Q4

REPORT INFORMATION
  Report Type: Spontaneous
  Country: US (occurrence: US)
  Receive Date: 20181105
  Receipt Date: 20181105
  Transmission Date: 20190205
  Serious: No
  Sender: FDA-Public Use
  Company Number: US-JNJFOC-20181013358

PATIENT
  Sex: Female

DRUGS (2)
  1. TYLENOL ARTHRITIS PAIN [Suspect]
     Active Substance: ACETAMINOPHEN
     Indication: POLYARTHRITIS
     Route: 048
  2. TYLENOL ARTHRITIS PAIN [Suspect]
     Active Substance: ACETAMINOPHEN
     Indication: SPONDYLITIS
     Route: 048

REACTIONS (2)
  - Incorrect dose administered [Unknown]
  - Inappropriate schedule of product administration [Unknown]
